FAERS Safety Report 12153965 (Version 1)
Quarter: 2016Q1

REPORT INFORMATION
  Report Type: Spontaneous
  Country: US (occurrence: None)
  Receive Date: 20160304
  Receipt Date: 20160304
  Transmission Date: 20160526
  Serious: No
  Sender: FDA-Public Use
  Company Number: None

PATIENT
  Age: 20 Year
  Sex: Female
  Weight: 72.58 kg

DRUGS (13)
  1. CYMBALTA [Concomitant]
     Active Substance: DULOXETINE HYDROCHLORIDE
  2. SINGULAIR [Concomitant]
     Active Substance: MONTELUKAST SODIUM
  3. BENTYL [Concomitant]
     Active Substance: DICYCLOMINE HYDROCHLORIDE
  4. TRAZODONE [Concomitant]
     Active Substance: TRAZODONE HYDROCHLORIDE
  5. LYRICA [Concomitant]
     Active Substance: PREGABALIN
  6. PRILOSEC [Concomitant]
     Active Substance: OMEPRAZOLE MAGNESIUM
  7. CYMBALTA [Suspect]
     Active Substance: DULOXETINE HYDROCHLORIDE
     Indication: PAIN
     Route: 048
     Dates: start: 20120601, end: 20160303
  8. TOPAMAX [Concomitant]
     Active Substance: TOPIRAMATE
  9. BACLOFEN. [Concomitant]
     Active Substance: BACLOFEN
  10. CELEBREX [Concomitant]
     Active Substance: CELECOXIB
  11. ZEBETA [Concomitant]
     Active Substance: BISOPROLOL FUMARATE
  12. CYMBALTA [Suspect]
     Active Substance: DULOXETINE HYDROCHLORIDE
     Indication: EHLERS-DANLOS SYNDROME
     Route: 048
     Dates: start: 20120601, end: 20160303
  13. FLORINEF ACETATE [Concomitant]
     Active Substance: FLUDROCORTISONE ACETATE

REACTIONS (16)
  - Irritability [None]
  - Nausea [None]
  - Heart rate irregular [None]
  - Impaired work ability [None]
  - Drug withdrawal syndrome [None]
  - Impaired driving ability [None]
  - Mood swings [None]
  - Anger [None]
  - Nystagmus [None]
  - Diarrhoea [None]
  - Migraine [None]
  - Tinnitus [None]
  - Paraesthesia [None]
  - Tachycardia [None]
  - Hypoacusis [None]
  - Vertigo [None]

NARRATIVE: CASE EVENT DATE: 20160302
